FAERS Safety Report 6191386-9 (Version None)
Quarter: 2009Q2

REPORT INFORMATION
  Report Type: 
  Country: None (occurrence: None)
  Receive Date: 20090515
  Receipt Date: 20090506
  Transmission Date: 20091009
  Serious: Yes (Death)
  Sender: FDA-Public Use
  Company Number: DE-AVENTIS-200911234DE

PATIENT
  Age: 76 Year
  Sex: Male

DRUGS (28)
  1. TAXOTERE [Suspect]
     Route: 041
     Dates: start: 20090409, end: 20090409
  2. AMITRIPTYLINE HCL [Concomitant]
     Indication: DRUG USE FOR UNKNOWN INDICATION
  3. ASPIRIN [Concomitant]
  4. ASPIRIN [Concomitant]
     Indication: STENT OCCLUSION
  5. BISOPROLOL [Concomitant]
     Indication: DRUG USE FOR UNKNOWN INDICATION
  6. CASODEX [Concomitant]
     Indication: DRUG USE FOR UNKNOWN INDICATION
  7. GABAPENTIN HEXAL [Concomitant]
     Indication: DRUG USE FOR UNKNOWN INDICATION
     Dosage: DOSE: 400-400-800-800
  8. HALOPERIDOL [Concomitant]
     Indication: NAUSEA
     Dosage: DOSE: 3 - 3 - 3-5
  9. HUMINSULIN NORMAL [Concomitant]
     Indication: DRUG USE FOR UNKNOWN INDICATION
     Dosage: DOSE: 24-26-30
  10. HUMINSULIN BASAL                   /00646001/ [Concomitant]
     Indication: DRUG USE FOR UNKNOWN INDICATION
     Dosage: DOSE: 0-10-0-40
  11. LAXOBERAL [Concomitant]
     Indication: PALLIATIVE CARE
     Dosage: DOSE: NOT REPORTED
  12. LAXOBERAL [Concomitant]
     Indication: OPIATES
     Dosage: DOSE: NOT REPORTED
  13. LORAZEPAM [Concomitant]
     Indication: PANIC ATTACK
     Dosage: DOSE: NOT REPORTED
  14. LORAZEPAM [Concomitant]
     Dosage: DOSE: NOT REPORTED
  15. MACROGOL [Concomitant]
     Indication: CONSTIPATION
     Dosage: DOSE: 1-0-1
  16. METAMIZOL HEXAL [Concomitant]
     Dosage: DOSE: NOT REPORTED
  17. PALLADONE [Concomitant]
     Indication: DRUG USE FOR UNKNOWN INDICATION
     Dosage: DOSE: 8-0-8
  18. NITROLINGUAL [Concomitant]
     Indication: DRUG USE FOR UNKNOWN INDICATION
     Dosage: DOSE: NOT REPORTED
  19. PANTOZOL                           /01263202/ [Concomitant]
     Indication: DRUG USE FOR UNKNOWN INDICATION
  20. PALLADON                           /00080901/ [Concomitant]
     Indication: PAIN
  21. SALBUTAMOL AL                      /00139502/ [Concomitant]
     Indication: DRUG USE FOR UNKNOWN INDICATION
     Dosage: DOSE: 1-0-1
     Route: 055
  22. SALBUTAMOL SANDOZ [Concomitant]
     Indication: DRUG USE FOR UNKNOWN INDICATION
     Dosage: DOSE: NOT REPORTED
  23. SERETIDE [Concomitant]
     Indication: DRUG USE FOR UNKNOWN INDICATION
     Dosage: DOSE: 1-0-1
  24. SPIRIVA [Concomitant]
     Indication: DRUG USE FOR UNKNOWN INDICATION
     Dosage: DOSE: VAGUE
  25. TORSEMIDE [Concomitant]
     Indication: DRUG USE FOR UNKNOWN INDICATION
  26. VOMEX SUPP [Concomitant]
     Indication: NAUSEA
     Dosage: DOSE: NOT REPORTED
  27. VOMEX SUPP [Concomitant]
     Indication: RETCHING
     Dosage: DOSE: NOT REPORTED
  28. IBUPROFEN [Concomitant]
     Indication: PAIN

REACTIONS (1)
  - DEATH [None]
